FAERS Safety Report 4561600-1 (Version None)
Quarter: 2005Q1

REPORT INFORMATION
  Report Type: 
  Country: None (occurrence: None)
  Receive Date: 20050126
  Receipt Date: 20041222
  Transmission Date: 20050727
  Serious: Yes (Life-Threatening, Hospitalization, Other)
  Sender: FDA-Public Use
  Company Number: US-GLAXOSMITHKLINE-A0538289A

PATIENT
  Age: 48 Year
  Sex: Female

DRUGS (3)
  1. ADVAIR DISKUS 100/50 [Suspect]
     Indication: ASTHMA
     Dosage: 1PUFF TWICE PER DAY
     Route: 055
     Dates: start: 20040329, end: 20041210
  2. EFFEXOR [Suspect]
     Indication: DEPRESSION
     Dosage: 150MG TWICE PER DAY
     Route: 048
     Dates: start: 20030415, end: 20041210
  3. XANAX [Concomitant]
     Indication: SLEEP DISORDER
     Dosage: .5MG AS REQUIRED
     Route: 048
     Dates: start: 20010313, end: 20041210

REACTIONS (3)
  - ASTHENIA [None]
  - PAIN [None]
  - RHABDOMYOLYSIS [None]
